FAERS Safety Report 5637231-9 (Version None)
Quarter: 2008Q1

REPORT INFORMATION
  Report Type: 
  Country: None (occurrence: None)
  Receive Date: 20080225
  Receipt Date: 20070308
  Transmission Date: 20080703
  Serious: No
  Sender: FDA-Public Use
  Company Number: US-BRISTOL-MYERS SQUIBB COMPANY-13707393

PATIENT
  Age: 52 Year
  Sex: Female
  Weight: 67 kg

DRUGS (8)
  1. KENALOG [Suspect]
     Indication: ARTHRALGIA
  2. KENALOG [Suspect]
     Indication: SCIATICA
  3. KADIAN [Concomitant]
  4. LYRICA [Concomitant]
  5. SKELAXIN [Concomitant]
  6. WELLBUTRIN [Concomitant]
  7. LISINOPRIL [Concomitant]
  8. FENTORA [Concomitant]

REACTIONS (1)
  - BACK PAIN [None]
